FAERS Safety Report 23451120 (Version 5)
Quarter: 2024Q1

REPORT INFORMATION
  Report Type: Spontaneous
  Country: US (occurrence: US)
  Receive Date: 20240129
  Receipt Date: 20240328
  Transmission Date: 20240409
  Serious: Yes (Death, Life-Threatening, Hospitalization, Other)
  Sender: FDA-Public Use
  Company Number: US-PFIZER INC-PV202200042896

PATIENT
  Age: 88 Year
  Sex: Male
  Weight: 92.971 kg

DRUGS (5)
  1. VYNDAMAX [Suspect]
     Active Substance: TAFAMIDIS
     Indication: Cardiac failure congestive
     Dosage: 61 MG, 1X/DAY
     Dates: end: 202401
  2. VYNDAMAX [Suspect]
     Active Substance: TAFAMIDIS
     Indication: Cardiac amyloidosis
     Dosage: UNK, DAILY
     Route: 048
     Dates: end: 20240208
  3. VYNDAMAX [Suspect]
     Active Substance: TAFAMIDIS
     Indication: Amyloidosis
  4. INSULIN NOS [Concomitant]
     Active Substance: INSULIN NOS
     Indication: Diabetes mellitus
     Dosage: UNK
  5. ELIQUIS [Concomitant]
     Active Substance: APIXABAN
     Indication: Anticoagulant therapy
     Dosage: UNK

REACTIONS (14)
  - Death [Fatal]
  - Erythema multiforme [Recovering/Resolving]
  - Rash [Unknown]
  - Pyrexia [Unknown]
  - Oral mucosal blistering [Unknown]
  - Oxygen saturation decreased [Unknown]
  - Pericardial effusion [Unknown]
  - Dyspnoea [Unknown]
  - Speech disorder [Unknown]
  - Sluggishness [Unknown]
  - Asthenia [Unknown]
  - Malaise [Unknown]
  - Hypersensitivity [Not Recovered/Not Resolved]
  - Product dose omission issue [Unknown]

NARRATIVE: CASE EVENT DATE: 20240101
